FAERS Safety Report 25124972 (Version 1)
Quarter: 2025Q1

REPORT INFORMATION
  Report Type: Report from Study
  Country: BR (occurrence: BR)
  Receive Date: 20250326
  Receipt Date: 20250326
  Transmission Date: 20250408
  Serious: Yes (Other)
  Sender: ALEXION PHARMACEUTICALS
  Company Number: BR-AstraZeneca-CH-00831493A

PATIENT
  Age: 66 Year
  Weight: 70 kg

DRUGS (13)
  1. BENRALIZUMAB [Suspect]
     Active Substance: BENRALIZUMAB
     Indication: Asthma
     Dosage: 30 MILLILITER, Q8W
  2. CETIRIZINE [Concomitant]
     Active Substance: CETIRIZINE HYDROCHLORIDE
  3. Sumax [Concomitant]
  4. DULOXETINE HYDROCHLORIDE [Concomitant]
     Active Substance: DULOXETINE HYDROCHLORIDE
  5. AMOXICILLIN [Concomitant]
     Active Substance: AMOXICILLIN
  6. POTASSIUM [Concomitant]
     Active Substance: POTASSIUM
  7. ARCOXIA [Concomitant]
     Active Substance: ETORICOXIB
  8. TRESIBA [Concomitant]
     Active Substance: INSULIN DEGLUDEC
  9. GLIFAGE [Concomitant]
     Active Substance: METFORMIN HYDROCHLORIDE
  10. TYLENOL [Concomitant]
     Active Substance: ACETAMINOPHEN
  11. Alenia [Concomitant]
  12. FIASP [Concomitant]
     Active Substance: INSULIN ASPART
  13. BUDESONIDE [Concomitant]
     Active Substance: BUDESONIDE
     Indication: Nasal irrigation

REACTIONS (9)
  - Urticaria [Recovering/Resolving]
  - Immunodeficiency [Recovering/Resolving]
  - Insomnia [Recovering/Resolving]
  - Migraine [Recovering/Resolving]
  - Mood swings [Recovering/Resolving]
  - Anxiety [Recovering/Resolving]
  - Urinary tract infection [Recovering/Resolving]
  - Fall [Recovering/Resolving]
  - Limb injury [Recovering/Resolving]
